FAERS Safety Report 10925644 (Version 1)
Quarter: 2015Q1

REPORT INFORMATION
  Report Type: Spontaneous
  Country: US (occurrence: US)
  Receive Date: 20150318
  Receipt Date: 20150318
  Transmission Date: 20150721
  Serious: No
  Sender: FDA-Public Use
  Company Number: US-ELI_LILLY_AND_COMPANY-US201502006724

PATIENT
  Sex: Male

DRUGS (1)
  1. CIALIS [Suspect]
     Active Substance: TADALAFIL
     Indication: OFF LABEL USE
     Dosage: 10 MG, BID
     Route: 048
     Dates: start: 2012, end: 2014

REACTIONS (2)
  - Asthma [Unknown]
  - Off label use [Unknown]
